FAERS Safety Report 8270986-6 (Version None)
Quarter: 2012Q2

REPORT INFORMATION
  Report Type: 
  Country: None (occurrence: None)
  Receive Date: 20120410
  Receipt Date: 20120328
  Transmission Date: 20120825
  Serious: Yes (Hospitalization)
  Sender: FDA-Public Use
  Company Number: US-ELI_LILLY_AND_COMPANY-US201204000344

PATIENT
  Age: 25 Year
  Sex: Female
  Weight: 22.676 kg

DRUGS (1)
  1. CYMBALTA [Suspect]
     Dosage: UNK, UNKNOWN

REACTIONS (2)
  - HEPATIC ENZYME INCREASED [None]
  - EATING DISORDER [None]
